FAERS Safety Report 5837947-5 (Version None)
Quarter: 2008Q3

REPORT INFORMATION
  Report Type: 
  Country: None (occurrence: None)
  Receive Date: 20080808
  Receipt Date: 20080708
  Transmission Date: 20090109
  Serious: No
  Sender: FDA-Public Use
  Company Number: A0636318A

PATIENT
  Age: 36 Year
  Sex: Female

DRUGS (4)
  1. PAROXETINE HCL [Suspect]
     Dosage: 10MG PER DAY
     Route: 048
     Dates: start: 20070113
  2. PAXIL CR [Suspect]
     Route: 048
  3. PAXIL [Suspect]
     Route: 048
  4. NO CONCURRENT MEDICATION [Concomitant]

REACTIONS (8)
  - ADVERSE EVENT [None]
  - ANXIETY [None]
  - CRYING [None]
  - DIARRHOEA [None]
  - DISTURBANCE IN ATTENTION [None]
  - DRUG INEFFECTIVE [None]
  - FEELING ABNORMAL [None]
  - FLAT AFFECT [None]
